FAERS Safety Report 6460490-X (Version None)
Quarter: 2009Q4

REPORT INFORMATION
  Report Type: 
  Country: None (occurrence: None)
  Receive Date: 20091130
  Receipt Date: 20091117
  Transmission Date: 20100525
  Serious: No
  Sender: FDA-Public Use
  Company Number: US-JNJFOC-20091105801

PATIENT
  Sex: Male
  Weight: 108.86 kg

DRUGS (2)
  1. DURAGESIC-100 [Suspect]
     Indication: BACK PAIN
     Route: 062
     Dates: start: 19940101
  2. UNKNOWN MEDICATION [Concomitant]

REACTIONS (1)
  - DRUG ADMINISTERED AT INAPPROPRIATE SITE [None]
